FAERS Safety Report 5385511-7 (Version None)
Quarter: 2007Q3

REPORT INFORMATION
  Report Type: 
  Country: None (occurrence: None)
  Receive Date: 20070709
  Receipt Date: 20070626
  Transmission Date: 20080115
  Serious: Yes (Death)
  Sender: FDA-Public Use
  Company Number: 2007P1000259

PATIENT
  Age: 13 Year
  Sex: Female

DRUGS (2)
  1. BUSULFEX [Suspect]
     Indication: STEM CELL TRANSPLANT
     Dosage: QID; IV
     Route: 042
     Dates: start: 20070116, end: 20070117
  2. VALPROATE SODIUM [Concomitant]

REACTIONS (20)
  - ADENOVIRUS INFECTION [None]
  - ANOREXIA [None]
  - BK VIRUS INFECTION [None]
  - BLADDER DISORDER [None]
  - BONE MARROW TRANSPLANT [None]
  - DIARRHOEA [None]
  - ENTEROCOCCAL INFECTION [None]
  - FUNGAL INFECTION [None]
  - HAEMATOMA [None]
  - HAEMATURIA [None]
  - HISTIOCYTOSIS HAEMATOPHAGIC [None]
  - HYDRONEPHROSIS [None]
  - ILIAC ARTERY EMBOLISM [None]
  - MALIGNANT HISTIOCYTOSIS [None]
  - SEPSIS [None]
  - STAPHYLOCOCCAL INFECTION [None]
  - STOMATITIS [None]
  - THROMBOTIC MICROANGIOPATHY [None]
  - TRANSPLANT REJECTION [None]
  - VIRAL HAEMORRHAGIC CYSTITIS [None]
